FAERS Safety Report 14141701 (Version 1)
Quarter: 2017Q4

REPORT INFORMATION
  Report Type: Spontaneous
  Country: US (occurrence: US)
  Receive Date: 20171028
  Receipt Date: 20171028
  Transmission Date: 20180321
  Serious: Yes (Disabling)
  Sender: FDA-Public Use
  Company Number: None

PATIENT
  Age: 32 Year
  Sex: Female
  Weight: 87.3 kg

DRUGS (5)
  1. PRAZOSIN. [Concomitant]
     Active Substance: PRAZOSIN
  2. SERTRALINE HCL 100 MG LUPINE PHARMACEUTICA L [Suspect]
     Active Substance: SERTRALINE HYDROCHLORIDE
     Indication: ANXIETY
     Dosage: ?          QUANTITY:1.5 TABLET(S);?
     Route: 048
  3. IBUPROFEN. [Concomitant]
     Active Substance: IBUPROFEN
  4. SERTRALINE HCL 100 MG LUPINE PHARMACEUTICA L [Suspect]
     Active Substance: SERTRALINE HYDROCHLORIDE
     Indication: DEPRESSION
     Dosage: ?          QUANTITY:1.5 TABLET(S);?
     Route: 048
  5. TOPIRAMATE. [Concomitant]
     Active Substance: TOPIRAMATE

REACTIONS (5)
  - Arthralgia [None]
  - Musculoskeletal pain [None]
  - Gait disturbance [None]
  - Oedema peripheral [None]
  - Swelling [None]

NARRATIVE: CASE EVENT DATE: 20170927
